FAERS Safety Report 6193795-0 (Version None)
Quarter: 2009Q2

REPORT INFORMATION
  Report Type: 
  Country: None (occurrence: None)
  Receive Date: 20090513
  Receipt Date: 20090506
  Transmission Date: 20091009
  Serious: Yes (Hospitalization)
  Sender: FDA-Public Use
  Company Number: WAES 0901USA03181

PATIENT
  Age: 43 Year
  Sex: Male

DRUGS (12)
  1. ISENTRESS [Suspect]
     Indication: HIV INFECTION
     Dosage: 400 MG/BID PO
     Route: 048
     Dates: start: 20081016
  2. KALETRA [Suspect]
     Indication: HIV INFECTION
     Dosage: 400/100 MG/BID PO
     Route: 048
     Dates: start: 20081016
  3. TAB EMTRICITABINE (+) TENOFOVIR DISOPROXIL FUMA [Suspect]
     Indication: HIV INFECTION
     Dosage: 200/300 MG/DAILY PO
     Route: 048
     Dates: start: 20081016
  4. ENSURE [Concomitant]
  5. JUVEN [Concomitant]
  6. PROTECT PLUS CAPSULES [Concomitant]
  7. SEPTRA DS [Concomitant]
  8. SEPTRA DS [Concomitant]
  9. SYNTHROID [Concomitant]
  10. ACYCLOVIR SODIUM [Concomitant]
  11. FLUCONAZOLE [Concomitant]
  12. MINERALS (UNSPECIFIED) (+) VITAMINS (UNS [Concomitant]

REACTIONS (7)
  - ACUTE SINUSITIS [None]
  - ASTHENIA [None]
  - CONVULSION [None]
  - FAECAL INCONTINENCE [None]
  - MEMORY IMPAIRMENT [None]
  - MUSCULOSKELETAL PAIN [None]
  - TRANSIENT ISCHAEMIC ATTACK [None]
